FAERS Safety Report 5659874-9 (Version None)
Quarter: 2008Q1

REPORT INFORMATION
  Report Type: 
  Country: None (occurrence: None)
  Receive Date: 20080311
  Receipt Date: 20070801
  Transmission Date: 20080703
  Serious: No
  Sender: FDA-Public Use
  Company Number: US-BAYER-200712465BCC

PATIENT
  Sex: Female
  Weight: 70 kg

DRUGS (6)
  1. ALEVE [Suspect]
     Indication: PAIN
     Dosage: TOTAL DAILY DOSE: 220 MG  UNIT DOSE: 220 MG
     Route: 048
     Dates: start: 20070420, end: 20070421
  2. ACULAR [Concomitant]
  3. POLYMYCIN B SULFATE [Concomitant]
  4. ECONOPRED PLUS [Concomitant]
  5. LEVOTHYROXINE SODIUM [Concomitant]
  6. HYDROCHLOROTHIAZIDE [Concomitant]

REACTIONS (1)
  - VISION BLURRED [None]
